FAERS Safety Report 7632433-4 (Version None)
Quarter: 2011Q3

REPORT INFORMATION
  Report Type: 
  Country: None (occurrence: None)
  Receive Date: 20110725
  Receipt Date: 20100903
  Transmission Date: 20111222
  Serious: Yes (Other)
  Sender: FDA-Public Use
  Company Number: US-BRISTOL-MYERS SQUIBB COMPANY-15272164

PATIENT
  Age: 72 Year
  Sex: Male

DRUGS (8)
  1. PREDNISONE [Concomitant]
  2. VICODIN [Concomitant]
  3. LIPITOR [Concomitant]
  4. COUMADIN [Suspect]
  5. REQUIP [Concomitant]
  6. FERROUS SULFATE TAB [Concomitant]
  7. DARVOCET [Concomitant]
  8. CONTRACEPTIVE [Concomitant]

REACTIONS (1)
  - GASTROINTESTINAL HAEMORRHAGE [None]
